FAERS Safety Report 21895086 (Version 1)
Quarter: 2023Q1

REPORT INFORMATION
  Report Type: Spontaneous
  Country: SI (occurrence: SI)
  Receive Date: 20230122
  Receipt Date: 20230122
  Transmission Date: 20230418
  Serious: Yes (Hospitalization, Other)
  Sender: FDA-Public Use
  Company Number: SI-BoehringerIngelheim-2023-BI-213370

PATIENT
  Age: 80 Year
  Sex: Female

DRUGS (10)
  1. DABIGATRAN [Suspect]
     Active Substance: DABIGATRAN
     Indication: Product used for unknown indication
  2. empagloflozin [Concomitant]
     Indication: Product used for unknown indication
     Dosage: PRESCRIBE AT DISCHARGE FROM THE HOSPITAL.
  3. AMLODIPINE\PERINDOPRIL [Concomitant]
     Active Substance: AMLODIPINE\PERINDOPRIL
     Indication: Product used for unknown indication
     Dosage: 4 MG/5 MG
  4. NEBIVOLOL [Concomitant]
     Active Substance: NEBIVOLOL
     Indication: Product used for unknown indication
  5. LEVOTHYROXINE [Concomitant]
     Active Substance: LEVOTHYROXINE
     Indication: Product used for unknown indication
  6. TORSEMIDE [Concomitant]
     Active Substance: TORSEMIDE
     Indication: Product used for unknown indication
     Dosage: WITHDRAWN AT DISCHARGE FROM THE HOSPITAL.
  7. FUROSEMIDE [Concomitant]
     Active Substance: FUROSEMIDE
     Indication: Product used for unknown indication
  8. AMIODARONE [Concomitant]
     Active Substance: AMIODARONE
     Indication: Product used for unknown indication
  9. PANTOPRAZOLE [Concomitant]
     Active Substance: PANTOPRAZOLE
     Indication: Product used for unknown indication
  10. TRIMETAZIDINE [Concomitant]
     Active Substance: TRIMETAZIDINE
     Indication: Product used for unknown indication
     Dosage: PRESCRIBE AT DISCHARGE FROM THE HOSPITAL.

REACTIONS (4)
  - N-terminal prohormone brain natriuretic peptide increased [Not Recovered/Not Resolved]
  - Chest pain [Unknown]
  - Dyspnoea exertional [Unknown]
  - Oedema peripheral [Unknown]
